FAERS Safety Report 10435027 (Version 1)
Quarter: 2014Q2

REPORT INFORMATION
  Report Type: Spontaneous
  Country: US (occurrence: None)
  Receive Date: 20140618
  Receipt Date: 20140618
  Transmission Date: 20141212
  Serious: Yes (Hospitalization, Other)
  Sender: FDA-Public Use
  Company Number: 099209U

PATIENT
  Sex: Female
  Weight: 68.5 kg

DRUGS (4)
  1. LACOSAMIDE (LACOSAMIDE) [Suspect]
     Indication: CONVULSION
  2. NORTRIPTYLINE [Concomitant]
  3. CITALOPRAM HYDROBROMIDE [Concomitant]
  4. AMLODIPINE BESYLATE [Concomitant]

REACTIONS (1)
  - Convulsion [None]
